FAERS Safety Report 8045022-7 (Version None)
Quarter: 2012Q1

REPORT INFORMATION
  Report Type: 
  Country: None (occurrence: None)
  Receive Date: 20120113
  Receipt Date: 20120109
  Transmission Date: 20120608
  Serious: Yes (Death)
  Sender: FDA-Public Use
  Company Number: PHEH2012US001000

PATIENT
  Sex: Female

DRUGS (1)
  1. RECLAST [Suspect]
     Dosage: 5 MG, ONCE A YEAR
     Route: 042

REACTIONS (2)
  - PULMONARY EMBOLISM [None]
  - CARDIAC ARREST [None]
